FAERS Safety Report 11115468 (Version 1)
Quarter: 2015Q2

REPORT INFORMATION
  Report Type: Spontaneous
  Country: US (occurrence: None)
  Receive Date: 20150504
  Receipt Date: 20150504
  Transmission Date: 20150821
  Serious: Yes (Hospitalization)
  Sender: FDA-Public Use
  Company Number: 1455573

PATIENT
  Age: 70 Year
  Sex: Female

DRUGS (3)
  1. AVASTIN [Suspect]
     Active Substance: BEVACIZUMAB
     Indication: NON-SMALL CELL LUNG CANCER
  2. CARBOPLATIN. [Concomitant]
     Active Substance: CARBOPLATIN
  3. PACLITAXEL. [Concomitant]
     Active Substance: PACLITAXEL

REACTIONS (1)
  - Epistaxis [None]
